FAERS Safety Report 4957859-9 (Version None)
Quarter: 2006Q1

REPORT INFORMATION
  Report Type: 
  Country: None (occurrence: None)
  Receive Date: 20060324
  Receipt Date: 20060309
  Transmission Date: 20060701
  Serious: Yes (Hospitalization)
  Sender: FDA-Public Use
  Company Number: A044-002-005978

PATIENT
  Age: 78 Year
  Sex: Female

DRUGS (1)
  1. ARICEPT [Suspect]
     Indication: DEMENTIA
     Dosage: 5 MG, 1 IN 1 D, ORAL
     Route: 048
     Dates: start: 20051001, end: 20060101

REACTIONS (2)
  - IDIOPATHIC THROMBOCYTOPENIC PURPURA [None]
  - WEIGHT DECREASED [None]
